FAERS Safety Report 4523006-0 (Version None)
Quarter: 2004Q4

REPORT INFORMATION
  Report Type: 
  Country: None (occurrence: None)
  Receive Date: 20041208
  Receipt Date: 20041122
  Transmission Date: 20050328
  Serious: Yes (Hospitalization)
  Sender: FDA-Public Use
  Company Number: 105922

PATIENT
  Age: 45 Year
  Sex: Female

DRUGS (9)
  1. HERCEPTIN [Suspect]
     Indication: BREAST CANCER
     Dosage: SEE IMAGE
     Route: 042
     Dates: start: 20021125, end: 20021125
  2. HERCEPTIN [Suspect]
     Indication: BREAST CANCER
     Dosage: SEE IMAGE
     Route: 042
     Dates: start: 20021203
  3. DOCETAXEL (DOCETAXEL) SOLUTION FOR INJECTION [Suspect]
     Indication: BREAST CANCER
     Dosage: 170 MG, Q3W, INTRAVENOUS
     Route: 042
     Dates: start: 20021126
  4. CYCLOPHOSPHAMIDE [Suspect]
     Indication: BREAST CANCER
     Dosage: 600 MG/M2, Q3W, INTRAVENOUS
     Route: 042
  5. DOXORUBICIN (DOXORUBICIN, DOXORUBICIN HYDROCHLORIDE) [Suspect]
     Indication: BREAST CANCER
     Dosage: 60 MG/M2, Q3W, INTRAVENOUS
     Route: 042
  6. DEXAMETHASONE [Concomitant]
  7. ONDANSETRON [Concomitant]
  8. NIMESULIDE [Concomitant]
  9. FILGRASTEM [Concomitant]

REACTIONS (3)
  - ANAEMIA [None]
  - GASTROINTESTINAL INFECTION [None]
  - MELAENA [None]
